FAERS Safety Report 12919196 (Version 3)
Quarter: 2016Q4

REPORT INFORMATION
  Report Type: Spontaneous
  Country: JP (occurrence: JP)
  Receive Date: 20161108
  Receipt Date: 20161117
  Transmission Date: 20170207
  Serious: Yes (Death, Other)
  Sender: FDA-Public Use
  Company Number: JP-009507513-1611JPN002391

PATIENT
  Age: 7 Decade
  Sex: Male

DRUGS (1)
  1. CUBICIN [Suspect]
     Active Substance: DAPTOMYCIN
     Dosage: 350 MG, QD
     Route: 041

REACTIONS (1)
  - Blood creatine phosphokinase increased [Fatal]
